FAERS Safety Report 5124166-3 (Version None)
Quarter: 2006Q4

REPORT INFORMATION
  Report Type: 
  Country: None (occurrence: None)
  Receive Date: 20061010
  Receipt Date: 20060602
  Transmission Date: 20070319
  Serious: No
  Sender: FDA-Public Use
  Company Number: US-BRISTOL-MYERS SQUIBB COMPANY-13403555

PATIENT
  Age: 60 Year
  Sex: Female

DRUGS (1)
  1. AVAPRO [Suspect]
     Dosage: DURATION: APPROX. 10 YEARS

REACTIONS (1)
  - ALOPECIA [None]
